FAERS Safety Report 25742246 (Version 2)
Quarter: 2025Q3

REPORT INFORMATION
  Report Type: Spontaneous
  Country: US (occurrence: None)
  Receive Date: 20250829
  Receipt Date: 20250925
  Transmission Date: 20251021
  Serious: No
  Sender: ALKERMES
  Company Number: US-ALKERMES INC.-ALK-2025-002223

PATIENT
  Age: 4 Decade
  Sex: Female

DRUGS (4)
  1. LYBALVI [Suspect]
     Active Substance: OLANZAPINE\SAMIDORPHAN L-MALATE
     Indication: Bipolar disorder
  2. LITHIUM [Concomitant]
     Active Substance: LITHIUM
     Indication: Product used for unknown indication
     Route: 065
  3. EFFEXOR [Concomitant]
     Active Substance: VENLAFAXINE HYDROCHLORIDE
     Indication: Product used for unknown indication
     Route: 065
  4. OLANZAPINE [Concomitant]
     Active Substance: OLANZAPINE
     Indication: Depression
     Route: 065

REACTIONS (3)
  - Eating disorder [Unknown]
  - Dizziness [Unknown]
  - Sedation [Unknown]
